APPROVED DRUG PRODUCT: PROAIR HFA
Active Ingredient: ALBUTEROL SULFATE
Strength: EQ 0.09MG BASE/INH
Dosage Form/Route: AEROSOL, METERED;INHALATION
Application: N021457 | Product #001 | TE Code: AB2
Applicant: TEVA BRANDED PHARMACEUTICAL PRODUCTS R AND D INC
Approved: Oct 29, 2004 | RLD: Yes | RS: Yes | Type: RX